FAERS Safety Report 16961538 (Version 1)
Quarter: 2019Q4

REPORT INFORMATION
  Report Type: Spontaneous
  Country: FR (occurrence: FR)
  Receive Date: 20191025
  Receipt Date: 20191025
  Transmission Date: 20200122
  Serious: Yes (Other)
  Sender: FDA-Public Use
  Company Number: FR-PFIZER INC-2019453545

PATIENT
  Age: 22 Year
  Sex: Female

DRUGS (1)
  1. PROSTINE E2 [Suspect]
     Active Substance: DINOPROSTONE
     Indication: LABOUR INDUCTION
     Dosage: 2MG/3G
     Route: 067
     Dates: start: 20190925

REACTIONS (1)
  - Hyperkinesia [Unknown]

NARRATIVE: CASE EVENT DATE: 20190925
